FAERS Safety Report 4642528-5 (Version None)
Quarter: 2005Q2

REPORT INFORMATION
  Report Type: 
  Country: None (occurrence: None)
  Receive Date: 20050422
  Receipt Date: 20050414
  Transmission Date: 20051028
  Serious: Yes (Hospitalization, Other)
  Sender: FDA-Public Use
  Company Number: US-GLAXOSMITHKLINE-A0554131A

PATIENT
  Age: 71 Year
  Sex: Female
  Weight: 101.4 kg

DRUGS (7)
  1. TUMS [Suspect]
     Indication: DYSPEPSIA
     Route: 048
     Dates: start: 19900101
  2. TOPROL-XL [Concomitant]
  3. PLENDIL [Concomitant]
  4. DIOVAN [Concomitant]
  5. PAXIL [Concomitant]
  6. ASPIRIN [Concomitant]
  7. ONE A DAY VITAMIN [Concomitant]

REACTIONS (13)
  - ABDOMINAL PAIN UPPER [None]
  - BREAST CANCER [None]
  - BREAST CANCER FEMALE [None]
  - CHILLS [None]
  - CHOLELITHIASIS [None]
  - DIABETES MELLITUS [None]
  - GASTROOESOPHAGEAL REFLUX DISEASE [None]
  - PALLOR [None]
  - POST PROCEDURAL COMPLICATION [None]
  - POSTOPERATIVE INFECTION [None]
  - PYREXIA [None]
  - SKIN ULCER [None]
  - STAPHYLOCOCCAL INFECTION [None]
